FAERS Safety Report 10198480 (Version 1)
Quarter: 2014Q2

REPORT INFORMATION
  Report Type: Spontaneous
  Country: US (occurrence: US)
  Receive Date: 20140527
  Receipt Date: 20140527
  Transmission Date: 20141212
  Serious: Yes (Other)
  Sender: FDA-Public Use
  Company Number: US-BAYER-2014-075082

PATIENT
  Sex: Female

DRUGS (1)
  1. MIRENA [Suspect]
     Dosage: 20 MCG/24HR, CONT
     Route: 015

REACTIONS (11)
  - Intracranial pressure increased [None]
  - Benign intracranial hypertension [None]
  - Headache [None]
  - Visual impairment [None]
  - Vitreous floaters [None]
  - Vision blurred [None]
  - Diplopia [None]
  - Injury [None]
  - Papilloedema [None]
  - Migraine [Not Recovered/Not Resolved]
  - Pain [None]
